FAERS Safety Report 6994607-5 (Version None)
Quarter: 2010Q3

REPORT INFORMATION
  Report Type: 
  Country: None (occurrence: None)
  Receive Date: 20100916
  Receipt Date: 20100916
  Transmission Date: 20110219
  Serious: Yes (Hospitalization)
  Sender: FDA-Public Use
  Company Number: None

PATIENT
  Age: 66 Year
  Sex: Female
  Weight: 63.05 kg

DRUGS (2)
  1. ALENDRONATE SODIUM [Suspect]
     Indication: OSTEOPOROSIS
     Dosage: 1 TABLET EVERY 7 DAYS PO
     Route: 048
     Dates: start: 20000110, end: 20091003
  2. FOSAMAX [Suspect]
     Indication: OSTEOPOROSIS
     Dosage: 1 TABLET EVERY 7 DAYS PO
     Route: 048
     Dates: start: 20000101, end: 20091003

REACTIONS (7)
  - ABDOMINAL PAIN [None]
  - ACCIDENT AT WORK [None]
  - FALL [None]
  - HIP FRACTURE [None]
  - PAIN IN EXTREMITY [None]
  - PATHOLOGICAL FRACTURE [None]
  - STRESS FRACTURE [None]
